FAERS Safety Report 23523333 (Version 1)
Quarter: 2024Q1

REPORT INFORMATION
  Report Type: Report from Study
  Country: US (occurrence: None)
  Receive Date: 20240214
  Receipt Date: 20240214
  Transmission Date: 20240410
  Serious: Yes (Hospitalization)
  Sender: FDA-Public Use
  Company Number: 2024A031191

PATIENT
  Age: 70 Year
  Sex: Female
  Weight: 62.6 kg

DRUGS (33)
  1. CALQUENCE [Suspect]
     Active Substance: ACALABRUTINIB
     Indication: Chronic lymphocytic leukaemia
     Route: 048
     Dates: start: 20240123
  2. ACETAMINOPHEN [Concomitant]
     Active Substance: ACETAMINOPHEN
  3. ALLOPURINOL [Concomitant]
     Active Substance: ALLOPURINOL
  4. AMOXICILLIN [Concomitant]
     Active Substance: AMOXICILLIN
  5. ANORO ELLIPTA [Concomitant]
     Active Substance: UMECLIDINIUM BROMIDE\VILANTEROL TRIFENATATE
     Route: 055
  6. ASPIRIN [Concomitant]
     Active Substance: ASPIRIN
  7. ATROVENT [Concomitant]
     Active Substance: IPRATROPIUM BROMIDE
  8. BACLOFEN [Concomitant]
     Active Substance: BACLOFEN
  9. BISACODYL [Concomitant]
     Active Substance: BISACODYL
     Route: 054
  10. CALAMINE [Concomitant]
     Active Substance: CALAMINE\FERRIC OXIDE RED\ZINC OXIDE
  11. CALCIUM CARBONATE [Concomitant]
     Active Substance: CALCIUM CARBONATE
  12. CEFTRIAXONE SODIUM [Concomitant]
     Active Substance: CEFTRIAXONE SODIUM
  13. CLARITIN [Concomitant]
     Active Substance: LORATADINE
  14. COMBIVENT RESPIMAT [Concomitant]
     Active Substance: ALBUTEROL SULFATE\IPRATROPIUM BROMIDE
     Route: 055
  15. CULTURELLE [Concomitant]
     Active Substance: LACTOBACILLUS RHAMNOSUS
  16. DOXYCYCLINE HYCLATE [Concomitant]
     Active Substance: DOXYCYCLINE HYCLATE
  17. GERI-TUSSIN [Concomitant]
     Active Substance: GUAIFENESIN
  18. JARDIANCE [Concomitant]
     Active Substance: EMPAGLIFLOZIN
  19. LEVEMIR [Concomitant]
     Active Substance: INSULIN DETEMIR
  20. LISINOPRIL [Concomitant]
     Active Substance: LISINOPRIL
  21. LUMIGAN [Concomitant]
     Active Substance: BIMATOPROST
  22. NORCO [Concomitant]
     Active Substance: ACETAMINOPHEN\HYDROCODONE BITARTRATE
  23. NORVASC [Concomitant]
     Active Substance: AMLODIPINE BESYLATE
  24. NOVOLOG [Concomitant]
     Active Substance: INSULIN ASPART
  25. NYSTATIN [Concomitant]
     Active Substance: NYSTATIN
  26. PANTOPRAZOLE SODIUM [Concomitant]
     Active Substance: PANTOPRAZOLE SODIUM
  27. POLYETHYLENE GLYCOL [Concomitant]
     Active Substance: POLYETHYLENE GLYCOL
  28. PROSTAT [Concomitant]
  29. REGLAN [Concomitant]
     Active Substance: METOCLOPRAMIDE HYDROCHLORIDE
  30. SENNA PLUS [Concomitant]
     Active Substance: DOCUSATE SODIUM\SENNOSIDES\SENNOSIDES A AND B
  31. SIMVASTATIN [Concomitant]
     Active Substance: SIMVASTATIN
  32. VITAMIN C [Concomitant]
     Active Substance: ASCORBIC ACID
  33. ZYVOX [Concomitant]
     Active Substance: LINEZOLID

REACTIONS (3)
  - White blood cell count abnormal [Recovering/Resolving]
  - Impaired healing [Recovering/Resolving]
  - Fatigue [Not Recovered/Not Resolved]

NARRATIVE: CASE EVENT DATE: 20240129
